FAERS Safety Report 5396764-3 (Version None)
Quarter: 2007Q3

REPORT INFORMATION
  Report Type: 
  Country: None (occurrence: None)
  Receive Date: 20070725
  Receipt Date: 20070717
  Transmission Date: 20080115
  Serious: Yes (Other)
  Sender: FDA-Public Use
  Company Number: BR-ROCHE-469181

PATIENT
  Sex: Male

DRUGS (2)
  1. ISOTRETINOIN [Suspect]
     Indication: ACNE
     Dates: start: 20060101, end: 20060802
  2. ISOTRETINOIN [Suspect]

REACTIONS (2)
  - NO ADVERSE REACTION [None]
  - NORMAL NEWBORN [None]
